FAERS Safety Report 24223422 (Version 1)
Quarter: 2024Q3

REPORT INFORMATION
  Report Type: Spontaneous
  Country: US (occurrence: US)
  Receive Date: 20240819
  Receipt Date: 20240819
  Transmission Date: 20241016
  Serious: Yes (Other)
  Sender: BRISTOL MYERS SQUIBB
  Company Number: US-BRISTOL-MYERS SQUIBB COMPANY-2024-127995

PATIENT
  Age: 35 Year
  Sex: Female

DRUGS (3)
  1. ZEPOSIA [Suspect]
     Active Substance: OZANIMOD HYDROCHLORIDE
     Indication: Colitis ulcerative
     Route: 048
     Dates: start: 202305
  2. MOUNJARO [Concomitant]
     Active Substance: TIRZEPATIDE
  3. THIAMINE [Concomitant]
     Active Substance: THIAMINE

REACTIONS (1)
  - Uveitis [Unknown]

NARRATIVE: CASE EVENT DATE: 20240801
